FAERS Safety Report 6720728-8 (Version None)
Quarter: 2010Q2

REPORT INFORMATION
  Report Type: 
  Country: None (occurrence: None)
  Receive Date: 20100512
  Receipt Date: 20100503
  Transmission Date: 20101027
  Serious: Yes (Hospitalization)
  Sender: FDA-Public Use
  Company Number: US-BIOGENIDEC-2009BI010873

PATIENT
  Age: 51 Year
  Sex: Male

DRUGS (4)
  1. AVONEX [Suspect]
     Indication: MULTIPLE SCLEROSIS
     Route: 030
     Dates: start: 20080101, end: 20100101
  2. AVONEX [Suspect]
     Route: 030
     Dates: start: 20080101, end: 20100101
  3. AVONEX [Suspect]
     Route: 030
     Dates: start: 20010401, end: 20030801
  4. CELLCEPT [Concomitant]
     Indication: MULTIPLE SCLEROSIS

REACTIONS (3)
  - BLOOD COUNT ABNORMAL [None]
  - CHILLS [None]
  - OESOPHAGEAL CARCINOMA [None]
